FAERS Safety Report 6935629-X (Version None)
Quarter: 2010Q3

REPORT INFORMATION
  Report Type: 
  Country: None (occurrence: None)
  Receive Date: 20100823
  Receipt Date: 20100810
  Transmission Date: 20110219
  Serious: Yes (Other)
  Sender: FDA-Public Use
  Company Number: US-JNJFOC-20100706141

PATIENT
  Sex: Female

DRUGS (4)
  1. LEVAQUIN [Suspect]
     Indication: SKIN LESION
     Route: 048
  2. LEVAQUIN [Suspect]
     Indication: INFECTION
     Route: 048
  3. LEVAQUIN [Suspect]
     Indication: PNEUMONIA
     Route: 048
  4. LEVAQUIN [Suspect]
     Indication: OSTEOMYELITIS
     Route: 048

REACTIONS (4)
  - JOINT INJURY [None]
  - MUSCLE INJURY [None]
  - OSTEOARTHRITIS [None]
  - ROTATOR CUFF SYNDROME [None]
